FAERS Safety Report 11807145 (Version 1)
Quarter: 2015Q4

REPORT INFORMATION
  Report Type: Spontaneous
  Country: US (occurrence: US)
  Receive Date: 20151207
  Receipt Date: 20151207
  Transmission Date: 20160305
  Serious: No
  Sender: FDA-Public Use
  Company Number: US-ASTRAZENECA-2015SF20208

PATIENT
  Age: 730 Month
  Sex: Female
  Weight: 68 kg

DRUGS (4)
  1. SYMBICORT [Suspect]
     Active Substance: BUDESONIDE\FORMOTEROL FUMARATE DIHYDRATE
     Indication: ASTHMA
     Dosage: 80/4.5 MCG ; DAILY
     Route: 055
     Dates: start: 2009
  2. SYMBICORT [Suspect]
     Active Substance: BUDESONIDE\FORMOTEROL FUMARATE DIHYDRATE
     Indication: ASTHMA
     Dosage: 80/4.5 MCG ; TWO TIMES A DAY; NEVER MORE THAN ONE PUFF EACH TIME
     Route: 055
     Dates: start: 2009
  3. SYMBICORT [Suspect]
     Active Substance: BUDESONIDE\FORMOTEROL FUMARATE DIHYDRATE
     Indication: CHRONIC OBSTRUCTIVE PULMONARY DISEASE
     Dosage: 80/4.5 MCG ; DAILY
     Route: 055
     Dates: start: 2009
  4. SYMBICORT [Suspect]
     Active Substance: BUDESONIDE\FORMOTEROL FUMARATE DIHYDRATE
     Indication: CHRONIC OBSTRUCTIVE PULMONARY DISEASE
     Dosage: 80/4.5 MCG ; TWO TIMES A DAY; NEVER MORE THAN ONE PUFF EACH TIME
     Route: 055
     Dates: start: 2009

REACTIONS (11)
  - Feeling abnormal [Unknown]
  - Headache [Unknown]
  - Feeling jittery [Unknown]
  - Hypersensitivity [Unknown]
  - Faecal incontinence [Unknown]
  - Adverse drug reaction [Unknown]
  - Blood pressure increased [Unknown]
  - Malaise [Unknown]
  - Dyspnoea [Unknown]
  - Chills [Unknown]
  - Intentional product misuse [Unknown]

NARRATIVE: CASE EVENT DATE: 201511
